FAERS Safety Report 21509003 (Version 1)
Quarter: 2022Q4

REPORT INFORMATION
  Report Type: Other
  Country: US (occurrence: US)
  Receive Date: 20221026
  Receipt Date: 20221026
  Transmission Date: 20230113
  Serious: No
  Sender: FDA-Public Use
  Company Number: US-MAYNE PHARMA-2022MYN000495

PATIENT
  Sex: Female

DRUGS (1)
  1. CLOZAPINE [Suspect]
     Active Substance: CLOZAPINE
     Indication: Product used for unknown indication
     Dosage: 450 MG, QD, AT BEDTIME
     Route: 048

REACTIONS (4)
  - Fatigue [Unknown]
  - Eating disorder [Unknown]
  - Illness [Unknown]
  - Housebound [Unknown]
